FAERS Safety Report 7195176-X (Version None)
Quarter: 2010Q4

REPORT INFORMATION
  Report Type: 
  Country: None (occurrence: None)
  Receive Date: 20101223
  Receipt Date: 20100927
  Transmission Date: 20110411
  Serious: No
  Sender: FDA-Public Use
  Company Number: US-AMGEN-KDL441573

PATIENT

DRUGS (3)
  1. ENBREL [Suspect]
     Indication: PSORIATIC ARTHROPATHY
     Dosage: 50 MG, QWK
     Route: 058
     Dates: start: 20030924
  2. ENBREL [Suspect]
     Indication: PSORIASIS
  3. ADALIMUMAB [Concomitant]

REACTIONS (3)
  - PSORIASIS [None]
  - PSORIATIC ARTHROPATHY [None]
  - THERAPEUTIC RESPONSE DECREASED [None]
